FAERS Safety Report 7226199-X (Version None)
Quarter: 2011Q1

REPORT INFORMATION
  Report Type: 
  Country: None (occurrence: None)
  Receive Date: 20110114
  Receipt Date: 20101231
  Transmission Date: 20110831
  Serious: Yes (Other)
  Sender: FDA-Public Use
  Company Number: PHHY2010GB90040

PATIENT

DRUGS (2)
  1. DIHYDROCODEINE BITARTRATE INJ [Suspect]
     Indication: ILL-DEFINED DISORDER
  2. ACETAMINOPHEN [Suspect]
     Indication: ILL-DEFINED DISORDER
     Dosage: 7.5 G, UNK

REACTIONS (2)
  - SPINA BIFIDA [None]
  - STRABISMUS [None]
